FAERS Safety Report 8095046-9 (Version None)
Quarter: 2012Q1

REPORT INFORMATION
  Report Type: 
  Country: None (occurrence: None)
  Receive Date: 20120131
  Receipt Date: 20120131
  Transmission Date: 20120608
  Serious: Yes (Other)
  Sender: FDA-Public Use
  Company Number: None

PATIENT
  Age: 43 Year
  Sex: Female
  Weight: 72.574 kg

DRUGS (1)
  1. MINOXIDIL (FOR WOMEN) [Suspect]
     Indication: ALOPECIA
     Dosage: 0.75ML
     Route: 061
     Dates: start: 20120114, end: 20120130

REACTIONS (3)
  - RASH PRURITIC [None]
  - ERYTHEMA [None]
  - BLISTER [None]
